FAERS Safety Report 5198028-X (Version None)
Quarter: 2007Q1

REPORT INFORMATION
  Report Type: 
  Country: None (occurrence: None)
  Receive Date: 20070104
  Receipt Date: 20061221
  Transmission Date: 20070707
  Serious: Yes (Hospitalization)
  Sender: FDA-Public Use
  Company Number: IT-JNJFOC-20061205645

PATIENT
  Age: 35 Year
  Sex: Female

DRUGS (5)
  1. CONTRAMAL [Suspect]
     Route: 048
  2. CONTRAMAL [Suspect]
     Indication: HEADACHE
     Route: 048
  3. IBUPROFEN [Suspect]
     Indication: HEADACHE
     Route: 065
  4. NIMESULIDE [Suspect]
     Indication: HEADACHE
     Route: 048
  5. DICLOFENAC SODIUM [Suspect]
     Indication: HEADACHE
     Route: 065

REACTIONS (3)
  - DRUG ABUSER [None]
  - OVERDOSE [None]
  - SYNCOPE [None]
